FAERS Safety Report 8523701-2 (Version None)
Quarter: 2012Q3

REPORT INFORMATION
  Report Type: 
  Country: None (occurrence: None)
  Receive Date: 20120720
  Receipt Date: 20120711
  Transmission Date: 20120928
  Serious: Yes (Other)
  Sender: FDA-Public Use
  Company Number: CA-JNJFOC-20120304555

PATIENT
  Sex: Female
  Weight: 56 kg

DRUGS (4)
  1. YAZ [Concomitant]
     Indication: CONTRACEPTION
     Route: 065
  2. IMURAN [Concomitant]
     Dosage: 3.5 TABS DAILY
     Route: 065
  3. ^VITAMINS^ (NOS) [Concomitant]
     Route: 065
  4. REMICADE [Suspect]
     Indication: CROHN'S DISEASE
     Route: 042
     Dates: start: 20100324

REACTIONS (4)
  - MATERNAL EXPOSURE DURING PREGNANCY [None]
  - SJOGREN'S SYNDROME [None]
  - WEIGHT DECREASED [None]
  - NIGHT SWEATS [None]
